FAERS Safety Report 7787057-5 (Version None)
Quarter: 2011Q3

REPORT INFORMATION
  Report Type: 
  Country: None (occurrence: None)
  Receive Date: 20110929
  Receipt Date: 20110922
  Transmission Date: 20111222
  Serious: Yes (Other)
  Sender: FDA-Public Use
  Company Number: US-BAYER-201012084NA

PATIENT
  Age: 72 Year
  Sex: Female
  Weight: 182 kg

DRUGS (4)
  1. TRASYLOL [Suspect]
     Indication: CORONARY ARTERY DISEASE
     Dosage: UNK
     Route: 042
     Dates: start: 20071026
  2. CONTRAST MEDIA [Concomitant]
     Indication: CATHETERISATION CARDIAC
  3. CORDARONE [Concomitant]
  4. TRASYLOL [Suspect]
     Dosage: UNK
     Route: 042
     Dates: start: 19960422

REACTIONS (16)
  - RENAL FAILURE [None]
  - RENAL IMPAIRMENT [None]
  - AMNESIA [None]
  - ANHEDONIA [None]
  - DEMENTIA [None]
  - INCONTINENCE [None]
  - EMOTIONAL DISTRESS [None]
  - STRESS [None]
  - FEAR [None]
  - MULTI-ORGAN FAILURE [None]
  - CEREBROVASCULAR ACCIDENT [None]
  - RENAL INJURY [None]
  - ANXIETY [None]
  - UNEVALUABLE EVENT [None]
  - PAIN [None]
  - INJURY [None]
